FAERS Safety Report 20829580 (Version 5)
Quarter: 2023Q2

REPORT INFORMATION
  Report Type: Spontaneous
  Country: IN (occurrence: IN)
  Receive Date: 20220513
  Receipt Date: 20230427
  Transmission Date: 20230722
  Serious: Yes (Other)
  Sender: FDA-Public Use
  Company Number: IN-PFIZER INC-202101500195

PATIENT
  Age: 58 Year
  Sex: Male

DRUGS (7)
  1. INLYTA [Suspect]
     Active Substance: AXITINIB
     Indication: Metastatic renal cell carcinoma
     Dosage: 5 MG, 2X/DAY
     Route: 048
     Dates: start: 20210909
  2. PEMBROLIZUMAB [Concomitant]
     Active Substance: PEMBROLIZUMAB
     Dosage: UNK
  3. MEGANEURON [MECOBALAMIN] [Concomitant]
     Dosage: UNK, 1X/DAY
  4. TELMA AM [Concomitant]
     Indication: Hypertension
     Dosage: 40 MG
  5. AMARYL [Concomitant]
     Active Substance: GLIMEPIRIDE
     Indication: Diabetes mellitus
  6. JANUMET XR [Concomitant]
     Active Substance: METFORMIN HYDROCHLORIDE\SITAGLIPTIN PHOSPHATE
     Indication: Diabetes mellitus
     Dosage: 500 MG
  7. ZYTEE [BENZALKONIUM CHLORIDE;CHOLINE SALICYLATE] [Concomitant]

REACTIONS (7)
  - Blood thyroid stimulating hormone increased [Not Recovered/Not Resolved]
  - Urinary bladder haemorrhage [Unknown]
  - Pruritus [Unknown]
  - Skin plaque [Unknown]
  - Blood creatinine increased [Unknown]
  - Skin lesion [Recovered/Resolved]
  - Diarrhoea [Unknown]

NARRATIVE: CASE EVENT DATE: 20210101
